FAERS Safety Report 11317139 (Version 1)
Quarter: 2015Q3

REPORT INFORMATION
  Report Type: Spontaneous
  Country: BR (occurrence: BR)
  Receive Date: 20150728
  Receipt Date: 20150728
  Transmission Date: 20151125
  Serious: Yes (Other)
  Sender: FDA-Public Use
  Company Number: BR-PFIZER INC-2015248031

PATIENT
  Age: 74 Year
  Sex: Female

DRUGS (7)
  1. RIVOTRIL [Concomitant]
     Active Substance: CLONAZEPAM
     Indication: TINNITUS
     Dosage: UNK
  2. FRONTAL [Suspect]
     Active Substance: ALPRAZOLAM
     Dosage: ONE TABLET OF 2 MG, DAILY
     Route: 048
     Dates: start: 201304
  3. SOMALGIN [Concomitant]
     Active Substance: ASPIRIN\DIHYDROXYALUMINUM AMINOACETATE ANHYDROUS\MAGNESIUM CARBONATE
     Dosage: UNK
  4. VASOPRIL [Concomitant]
     Active Substance: FOSINOPRIL
     Dosage: UNK
  5. RUSOVAS [Concomitant]
     Active Substance: ROSUVASTATIN
     Dosage: UNK
  6. VASTAREL [Concomitant]
     Active Substance: TRIMETAZIDINE DIHYDROCHLORIDE
     Dosage: UNK
  7. SUSTRATE [Concomitant]
     Active Substance: PROPATYL NITRATE
     Dosage: UNK

REACTIONS (1)
  - Deafness [Unknown]
